FAERS Safety Report 10986573 (Version 2)
Quarter: 2015Q2

REPORT INFORMATION
  Report Type: Spontaneous
  Country: JP (occurrence: None)
  Receive Date: 20150402
  Receipt Date: 20150504
  Transmission Date: 20150821
  Serious: Yes (Other)
  Sender: FDA-Public Use
  Company Number: 2015FE01007

PATIENT
  Age: 73 Year
  Sex: Male
  Weight: 67 kg

DRUGS (5)
  1. GONAX (DEGARELIX) POWDER AND SOLVENT FOR SOLUTION FOR INJECTION [Concomitant]
     Active Substance: DEGARELIX
     Indication: PROSTATE CANCER METASTATIC
     Route: 058
     Dates: start: 20140303
  2. GONAX (DEGARELIX) POWDER AND SOLVENT FOR SOLUTION FOR INJECTION [Suspect]
     Active Substance: DEGARELIX
     Indication: PROSTATE CANCER METASTATIC
     Route: 058
     Dates: start: 20140204, end: 20140204
  3. CASODEX [Concomitant]
     Active Substance: BICALUTAMIDE
  4. GONAX (DEGARELIX) POWDER AND SOLVENT FOR SOLUTION FOR INJECTION [Suspect]
     Active Substance: DEGARELIX
     Indication: PROSTATE CANCER RECURRENT
     Route: 058
     Dates: start: 20140204, end: 20140204
  5. GONAX (DEGARELIX) POWDER AND SOLVENT FOR SOLUTION FOR INJECTION [Concomitant]
     Active Substance: DEGARELIX
     Indication: PROSTATE CANCER RECURRENT
     Route: 058
     Dates: start: 20140303

REACTIONS (2)
  - Adverse event [None]
  - Hypertension [None]

NARRATIVE: CASE EVENT DATE: 20140224
